FAERS Safety Report 25428070 (Version 1)
Quarter: 2025Q2

REPORT INFORMATION
  Report Type: Spontaneous
  Country: JP (occurrence: JP)
  Receive Date: 20250612
  Receipt Date: 20250612
  Transmission Date: 20250717
  Serious: Yes (Other)
  Sender: TEVA
  Company Number: JP-TEVA-VS-3339818

PATIENT

DRUGS (1)
  1. MODAFINIL [Suspect]
     Active Substance: MODAFINIL
     Indication: Product used for unknown indication
     Route: 048

REACTIONS (3)
  - Arrhythmia [Unknown]
  - Ventricular extrasystoles [Unknown]
  - Palpitations [Unknown]
